FAERS Safety Report 9859628 (Version 2)
Quarter: 2014Q2

REPORT INFORMATION
  Report Type: Spontaneous
  Country: GB (occurrence: GB)
  Receive Date: 20140131
  Receipt Date: 20140402
  Transmission Date: 20141212
  Serious: Yes (Hospitalization)
  Sender: FDA-Public Use
  Company Number: PHFR2014GB001022

PATIENT
  Age: 50 Year
  Sex: Male

DRUGS (1)
  1. METHYLPHENIDATE [Suspect]
     Dosage: 10 MG UP TO SIX TIMES DAILY
     Route: 048
     Dates: start: 20090804

REACTIONS (1)
  - Acute myocardial infarction [Unknown]
